FAERS Safety Report 6060071-6 (Version None)
Quarter: 2009Q1

REPORT INFORMATION
  Report Type: 
  Country: None (occurrence: None)
  Receive Date: 20090130
  Receipt Date: 20090121
  Transmission Date: 20090719
  Serious: Yes (Hospitalization, Other)
  Sender: FDA-Public Use
  Company Number: US-ELI_LILLY_AND_COMPANY-US200706003122

PATIENT
  Sex: Female
  Weight: 226.76 kg

DRUGS (3)
  1. ZYPREXA [Suspect]
     Indication: SCHIZOPHRENIA
     Dosage: 15 MG, UNK
     Dates: start: 20070201, end: 20070606
  2. ZYPREXA [Suspect]
     Dosage: 20 MG, UNK
     Dates: start: 20070201, end: 20070606
  3. ZYPREXA [Suspect]
     Dosage: UNK, UNK
     Dates: start: 20070601

REACTIONS (9)
  - ABNORMAL BEHAVIOUR [None]
  - DIABETES MELLITUS [None]
  - DRUG INEFFECTIVE [None]
  - HYPERTENSION [None]
  - MENTAL DISORDER [None]
  - NAIL BED BLEEDING [None]
  - NAIL DISCOLOURATION [None]
  - OVERDOSE [None]
  - WEIGHT INCREASED [None]
